FAERS Safety Report 23743356 (Version 3)
Quarter: 2024Q3

REPORT INFORMATION
  Report Type: Spontaneous
  Country: US (occurrence: None)
  Receive Date: 20240415
  Receipt Date: 20240703
  Transmission Date: 20241016
  Serious: No
  Sender: ASTRAZENECA
  Company Number: 2024A088106

PATIENT
  Sex: Male

DRUGS (1)
  1. BYDUREON BCISE [Suspect]
     Active Substance: EXENATIDE
     Dosage: 2.0MG UNKNOWN
     Route: 058

REACTIONS (7)
  - Injection site pain [Unknown]
  - Injection site indentation [Unknown]
  - Injection site bruising [Unknown]
  - Extra dose administered [Unknown]
  - Needle issue [Unknown]
  - Product administration interrupted [Unknown]
  - Device use issue [Unknown]
